FAERS Safety Report 5678892-8 (Version None)
Quarter: 2008Q1

REPORT INFORMATION
  Report Type: 
  Country: None (occurrence: None)
  Receive Date: 20080325
  Receipt Date: 20080317
  Transmission Date: 20080703
  Serious: Yes (Other)
  Sender: FDA-Public Use
  Company Number: RO-AVENTIS-200812438GDDC

PATIENT
  Age: 32 Year
  Sex: Female

DRUGS (3)
  1. METRONIDAZOLE HCL [Suspect]
     Route: 067
  2. TENONITROZOLE [Concomitant]
     Route: 048
  3. AZITHROMYCIN [Concomitant]
     Route: 048

REACTIONS (10)
  - ANGIOEDEMA [None]
  - ARTHRALGIA [None]
  - DYSPNOEA [None]
  - HEPATOMEGALY [None]
  - LARYNGEAL OEDEMA [None]
  - LYMPHADENOPATHY [None]
  - MALAISE [None]
  - PYREXIA [None]
  - RASH PRURITIC [None]
  - SERUM SICKNESS [None]
